FAERS Safety Report 15382877 (Version 1)
Quarter: 2018Q3

REPORT INFORMATION
  Report Type: Spontaneous
  Country: US (occurrence: US)
  Receive Date: 20180913
  Receipt Date: 20180913
  Transmission Date: 20181010
  Serious: Yes (Other)
  Sender: FDA-Public Use
  Company Number: US-ASTELLAS-2017US038322

PATIENT
  Age: 86 Year
  Sex: Male

DRUGS (2)
  1. XTANDI [Suspect]
     Active Substance: ENZALUTAMIDE
     Indication: PROSTATE CANCER
     Route: 048
  2. XTANDI [Suspect]
     Active Substance: ENZALUTAMIDE
     Indication: PROSTATIC SPECIFIC ANTIGEN INCREASED
     Route: 048

REACTIONS (4)
  - Bronchitis [Unknown]
  - International normalised ratio decreased [Unknown]
  - Urinary incontinence [Unknown]
  - Urine odour abnormal [Unknown]

NARRATIVE: CASE EVENT DATE: 20170913
